FAERS Safety Report 9547119 (Version 1)
Quarter: 2013Q2

REPORT INFORMATION
  Report Type: Spontaneous
  Country: US (occurrence: None)
  Receive Date: 20130606
  Receipt Date: 20130606
  Transmission Date: 20140414
  Serious: No
  Sender: FDA-Public Use
  Company Number: 2013PROUSA02555

PATIENT
  Age: 57 Year
  Sex: Male
  Weight: 90.7 kg

DRUGS (1)
  1. PROVENGE (SIPULEUCEL-T) SUSPENSION, 250ML [Suspect]
     Indication: PROSTATE CANCER METASTATIC
     Dosage: 250 ML, SINGLE, INTRAVENOUS
     Route: 042
     Dates: start: 20130201, end: 20130201

REACTIONS (7)
  - Diplopia [None]
  - Malaise [None]
  - Chills [None]
  - Nausea [None]
  - Arthralgia [None]
  - Myalgia [None]
  - Headache [None]
